FAERS Safety Report 6253796-0 (Version None)
Quarter: 2009Q3

REPORT INFORMATION
  Report Type: 
  Country: None (occurrence: None)
  Receive Date: 20090702
  Receipt Date: 20071107
  Transmission Date: 20100115
  Serious: Yes (Other)
  Sender: FDA-Public Use
  Company Number: US-ASTRAZENECA-2007UW05970

PATIENT
  Age: 20162 Day
  Sex: Female
  Weight: 92.1 kg

DRUGS (9)
  1. SEROQUEL [Suspect]
     Indication: BIPOLAR DISORDER
     Dosage: 25 - 400 MG
     Route: 048
     Dates: start: 20000523
  2. SEROQUEL [Suspect]
     Indication: DEPRESSION
     Dosage: 25 - 400 MG
     Route: 048
     Dates: start: 20000523
  3. SEROQUEL [Suspect]
     Dosage: TOTAL DAILY DOSE 200 MG
     Route: 048
     Dates: start: 20030101, end: 20060101
  4. SEROQUEL [Suspect]
     Dosage: TOTAL DAILY DOSE 200 MG
     Route: 048
     Dates: start: 20030101, end: 20060101
  5. PAXIL [Concomitant]
     Indication: DEPRESSION
     Dosage: 25 - 40 MG
     Route: 048
     Dates: start: 20020128
  6. PAXIL [Concomitant]
     Indication: ANXIETY
     Dosage: 25 - 40 MG
     Route: 048
     Dates: start: 20020128
  7. AMARYL [Concomitant]
     Dosage: 1 - 2.5 MG
     Route: 048
     Dates: start: 20040227
  8. DILTIAZEM [Concomitant]
     Dosage: 240 - 360 MG
     Route: 048
     Dates: start: 20030219
  9. METFORMIN [Concomitant]
     Dosage: 500 - 1000 MG
     Route: 048
     Dates: start: 20040227

REACTIONS (3)
  - DIABETES MELLITUS [None]
  - DIABETIC RETINOPATHY [None]
  - TYPE 2 DIABETES MELLITUS [None]
